FAERS Safety Report 21081439 (Version 1)
Quarter: 2022Q3

REPORT INFORMATION
  Report Type: Spontaneous
  Country: US (occurrence: None)
  Receive Date: 20220713
  Receipt Date: 20220713
  Transmission Date: 20221026
  Serious: Yes (Other)
  Sender: FDA-Public Use
  Company Number: None

PATIENT
  Age: 20 Year
  Sex: Female
  Weight: 54.9 kg

DRUGS (3)
  1. DELTASONE [Suspect]
     Active Substance: PREDNISONE
     Indication: Mast cell activation syndrome
     Dosage: OTHER QUANTITY : 3 TABLET(S);?FREQUENCY : TWICE A DAY;?
     Route: 048
  2. 20mg prednisone tablets 3x daily was tolerated w/o problems (~2020) [Concomitant]
  3. NAC 600mg 2x Daily (was off it for a week and didn^t restart before ta [Concomitant]

REACTIONS (10)
  - Rash [None]
  - Exophthalmos [None]
  - Vision blurred [None]
  - Sedation [None]
  - Respiratory rate decreased [None]
  - Myalgia [None]
  - Costochondritis [None]
  - Bronchospasm [None]
  - Pyrexia [None]
  - Hypervolaemia [None]

NARRATIVE: CASE EVENT DATE: 20220614
